FAERS Safety Report 17848853 (Version 2)
Quarter: 2020Q2

REPORT INFORMATION
  Report Type: Report from Study
  Country: BD (occurrence: BD)
  Receive Date: 20200602
  Receipt Date: 20200605
  Transmission Date: 20200714
  Serious: Yes (Death)
  Sender: FDA-Public Use
  Company Number: NVSC2020BD151718

PATIENT
  Age: 80 Year
  Sex: Female

DRUGS (1)
  1. FEMARA [Suspect]
     Active Substance: LETROZOLE
     Indication: BREAST CANCER
     Dosage: 2.5 MG, QD
     Route: 048
     Dates: start: 2016

REACTIONS (3)
  - Peripheral swelling [Fatal]
  - Renal failure [Fatal]
  - Fluid retention [Fatal]

NARRATIVE: CASE EVENT DATE: 20200523
